FAERS Safety Report 15928704 (Version 3)
Quarter: 2019Q3

REPORT INFORMATION
  Report Type: Spontaneous
  Country: US (occurrence: US)
  Receive Date: 20190206
  Receipt Date: 20190711
  Transmission Date: 20191004
  Serious: Yes (Death, Other)
  Sender: FDA-Public Use
  Company Number: US-ASTRAZENECA-2018SF13519

PATIENT
  Age: 29047 Day
  Sex: Male
  Weight: 81.6 kg

DRUGS (44)
  1. PRILOSEC [Suspect]
     Active Substance: OMEPRAZOLE MAGNESIUM
     Indication: GASTROOESOPHAGEAL REFLUX DISEASE
     Route: 048
     Dates: start: 2003
  2. PRAVACHOL [Concomitant]
     Active Substance: PRAVASTATIN SODIUM
     Route: 048
  3. ASPIRIN. [Concomitant]
     Active Substance: ASPIRIN
     Route: 048
     Dates: start: 20140513
  4. DIGOXIN. [Concomitant]
     Active Substance: DIGOXIN
     Route: 048
     Dates: start: 20140513
  5. PREDNISONE. [Concomitant]
     Active Substance: PREDNISONE
  6. LISINOPRIL. [Concomitant]
     Active Substance: LISINOPRIL
  7. CIPROFLOXACIN. [Concomitant]
     Active Substance: CIPROFLOXACIN
  8. PRILOSEC OTC [Suspect]
     Active Substance: OMEPRAZOLE MAGNESIUM
     Indication: GASTROOESOPHAGEAL REFLUX DISEASE
     Route: 048
     Dates: start: 2003, end: 2016
  9. VASOTEC [Concomitant]
     Active Substance: ENALAPRIL MALEATE
     Route: 048
     Dates: start: 20030715
  10. PRILOSEC [Suspect]
     Active Substance: OMEPRAZOLE MAGNESIUM
     Indication: GASTROOESOPHAGEAL REFLUX DISEASE
     Route: 048
     Dates: start: 20031014
  11. NORVASC [Concomitant]
     Active Substance: AMLODIPINE BESYLATE
     Route: 048
     Dates: start: 20030715
  12. PEPCID [Concomitant]
     Active Substance: FAMOTIDINE
     Dates: start: 2014
  13. METOPROLOL. [Concomitant]
     Active Substance: METOPROLOL
  14. FERROUS SULFATE. [Concomitant]
     Active Substance: FERROUS SULFATE
  15. LEVAQUIN [Concomitant]
     Active Substance: LEVOFLOXACIN
     Route: 048
     Dates: start: 20140513
  16. WARFARIN [Concomitant]
     Active Substance: WARFARIN
  17. TAGAMET [Concomitant]
     Active Substance: CIMETIDINE
  18. PRAVASTATIN. [Concomitant]
     Active Substance: PRAVASTATIN
  19. FUROSEMIDE. [Concomitant]
     Active Substance: FUROSEMIDE
  20. PROTONIX [Suspect]
     Active Substance: PANTOPRAZOLE SODIUM
     Indication: GASTROOESOPHAGEAL REFLUX DISEASE
     Dosage: GENERIC
     Route: 065
     Dates: start: 2013, end: 2016
  21. ACETAMINOPHEN. [Concomitant]
     Active Substance: ACETAMINOPHEN
     Route: 048
     Dates: start: 20140513
  22. AMLODIPINE [Concomitant]
     Active Substance: AMLODIPINE BESYLATE
  23. AZITHROMYCIN ANHYDROUS. [Concomitant]
     Active Substance: AZITHROMYCIN ANHYDROUS
  24. LOSARTAN. [Concomitant]
     Active Substance: LOSARTAN
  25. SIMVASTATIN. [Concomitant]
     Active Substance: SIMVASTATIN
  26. CALCITROL [CALCIUM CARBONATE\ERGOCALCIFEROL\RETINOL] [Concomitant]
     Active Substance: CALCIUM CARBONATE\ERGOCALCIFEROL\RETINOL
  27. PRILOSEC OTC [Suspect]
     Active Substance: OMEPRAZOLE MAGNESIUM
     Indication: GASTROOESOPHAGEAL REFLUX DISEASE
     Route: 048
     Dates: start: 2003, end: 2009
  28. LISINOPRIL. [Concomitant]
     Active Substance: LISINOPRIL
  29. IBUPROFEN. [Concomitant]
     Active Substance: IBUPROFEN
     Dates: start: 2017
  30. ZANTAC [Concomitant]
     Active Substance: RANITIDINE HYDROCHLORIDE
  31. GLIPIZIDE. [Concomitant]
     Active Substance: GLIPIZIDE
  32. WARFARIN [Concomitant]
     Active Substance: WARFARIN
  33. AMOXICILLIN. [Concomitant]
     Active Substance: AMOXICILLIN
  34. PRILOSEC [Suspect]
     Active Substance: OMEPRAZOLE MAGNESIUM
     Indication: GASTROOESOPHAGEAL REFLUX DISEASE
     Route: 048
     Dates: start: 20031014
  35. VITAMIN D [Concomitant]
     Active Substance: VITAMIN D NOS
     Dates: start: 2014, end: 2016
  36. PLAVIX [Concomitant]
     Active Substance: CLOPIDOGREL BISULFATE
  37. OXYCODONE [Concomitant]
     Active Substance: OXYCODONE
  38. TRAMADOL. [Concomitant]
     Active Substance: TRAMADOL
  39. DOCUSATE [Concomitant]
     Active Substance: DOCUSATE
  40. CEPHALEXIN. [Concomitant]
     Active Substance: CEPHALEXIN
  41. PRILOSEC [Suspect]
     Active Substance: OMEPRAZOLE MAGNESIUM
     Indication: GASTROOESOPHAGEAL REFLUX DISEASE
     Route: 048
     Dates: start: 2000, end: 2009
  42. PROTONIX [Suspect]
     Active Substance: PANTOPRAZOLE SODIUM
     Indication: GASTROOESOPHAGEAL REFLUX DISEASE
     Route: 065
     Dates: start: 2003, end: 2016
  43. TOPROL XL [Concomitant]
     Active Substance: METOPROLOL SUCCINATE
     Route: 048
     Dates: start: 20030715
  44. CLOPIDOGREL [Concomitant]
     Active Substance: CLOPIDOGREL BISULFATE

REACTIONS (8)
  - Hypotension [Fatal]
  - Ischaemic cardiomyopathy [Fatal]
  - End stage renal disease [Fatal]
  - Chronic kidney disease [Unknown]
  - Renal failure [Unknown]
  - Acute kidney injury [Unknown]
  - Nephropathy [Unknown]
  - Arrhythmia [Fatal]

NARRATIVE: CASE EVENT DATE: 20140513
